FAERS Safety Report 6289363-2 (Version None)
Quarter: 2009Q3

REPORT INFORMATION
  Report Type: 
  Country: None (occurrence: None)
  Receive Date: 20090730
  Receipt Date: 20071011
  Transmission Date: 20100115
  Serious: Yes (Other)
  Sender: FDA-Public Use
  Company Number: US-ASTRAZENECA-2007UW23808

PATIENT
  Age: 54 Year
  Sex: Female
  Weight: 112.9 kg

DRUGS (15)
  1. SEROQUEL [Suspect]
     Indication: DEPRESSION
     Dosage: 25-200 MG
     Route: 048
     Dates: start: 20021205, end: 20030623
  2. SEROQUEL [Suspect]
     Route: 048
     Dates: start: 20030401, end: 20040201
  3. SEROQUEL [Suspect]
     Route: 048
     Dates: start: 20030805
  4. CELEBREX [Concomitant]
  5. EVISTA [Concomitant]
  6. COZAAR [Concomitant]
     Dosage: 50 MG - 100 MG DAILY
  7. ZOCOR [Concomitant]
     Dosage: 200 MG - 400 MG DAILY
  8. PREVACID [Concomitant]
     Indication: REFLUX OESOPHAGITIS
  9. WELLBUTRIN [Concomitant]
     Dosage: 150 MG - 300 MG
  10. PROTONIX [Concomitant]
  11. LEXAPRO [Concomitant]
  12. METFORMIN [Concomitant]
  13. HYZAAR [Concomitant]
  14. FAMVIR [Concomitant]
  15. TRAZODONE HCL [Concomitant]
     Dosage: 100 MG -300 MG

REACTIONS (5)
  - DIABETES MELLITUS [None]
  - DIABETIC AUTONOMIC NEUROPATHY [None]
  - RENAL FAILURE [None]
  - TYPE 2 DIABETES MELLITUS [None]
  - VISUAL IMPAIRMENT [None]
